FAERS Safety Report 13246361 (Version 1)
Quarter: 2017Q1

REPORT INFORMATION
  Report Type: Spontaneous
  Country: GB (occurrence: GB)
  Receive Date: 20170217
  Receipt Date: 20170217
  Transmission Date: 20170428
  Serious: Yes (Other)
  Sender: FDA-Public Use
  Company Number: GB-ASTRAZENECA-2017SE15765

PATIENT
  Age: 87 Year
  Sex: Female
  Weight: 58 kg

DRUGS (18)
  1. DESLORATADINE. [Concomitant]
     Active Substance: DESLORATADINE
     Dates: start: 20161220
  2. DIORALYTE [Concomitant]
     Active Substance: CITRIC ACID MONOHYDRATE\DEXTROSE\POTASSIUM CATION\SODIUM CHLORIDE
     Dates: start: 20170113, end: 20170114
  3. DYMISTA [Concomitant]
     Active Substance: AZELASTINE HYDROCHLORIDE\FLUTICASONE PROPIONATE
     Dates: start: 20170113
  4. FOLIC ACID. [Concomitant]
     Active Substance: FOLIC ACID
     Dates: start: 20161223
  5. SALBUTAMOL [Concomitant]
     Active Substance: ALBUTEROL
     Dosage: INHALE ONE OR TWO PUFFS UP TO FOUR TIMES A DAY
     Route: 055
     Dates: start: 20161220
  6. RAMIPRIL. [Concomitant]
     Active Substance: RAMIPRIL
     Dates: start: 20161220
  7. STRONTIUM RANELATE [Concomitant]
     Active Substance: STRONTIUM RANELATE
     Dates: start: 20161223
  8. BUDESONIDE. [Suspect]
     Active Substance: BUDESONIDE
     Route: 055
     Dates: start: 20161220
  9. FUROSEMIDE. [Concomitant]
     Active Substance: FUROSEMIDE
     Dates: start: 20161220
  10. CLOPIDOGREL [Concomitant]
     Active Substance: CLOPIDOGREL BISULFATE
     Dates: start: 20161220
  11. GAVISCON ADVANCE [Concomitant]
     Active Substance: POTASSIUM BICARBONATE\SODIUM ALGINATE
     Dosage: 5ML - 10ML 4 TIMES/DAY
     Dates: start: 20161220
  12. LOPRAZOLAM [Concomitant]
     Active Substance: LOPRAZOLAM
     Dosage: ONE HALF TO 1 TABLET AT NIGHT
     Dates: start: 20161230
  13. ZAPAIN [Concomitant]
     Active Substance: ACETAMINOPHEN\CODEINE PHOSPHATE
     Dosage: TAKE 1 OR 2 4 TIMES/DAY
     Dates: start: 20170118
  14. MANEVAC [Concomitant]
     Dates: start: 20161220
  15. MOMETASONE [Concomitant]
     Active Substance: MOMETASONE
     Dosage: ONE SPRAY TO EACH NOSTRIL DAILY
     Route: 045
     Dates: start: 20161220, end: 20170124
  16. SIMVASTATIN. [Concomitant]
     Active Substance: SIMVASTATIN
     Dates: start: 20161220, end: 20170117
  17. VISCOTEARS [Concomitant]
     Active Substance: CARBOMER
     Dates: start: 20161220
  18. LANSOPRAZOLE. [Concomitant]
     Active Substance: LANSOPRAZOLE
     Dates: start: 20161220

REACTIONS (2)
  - Oral mucosal blistering [Recovering/Resolving]
  - Mouth ulceration [Recovering/Resolving]

NARRATIVE: CASE EVENT DATE: 20170201
